FAERS Safety Report 22630598 (Version 1)
Quarter: 2023Q2

REPORT INFORMATION
  Report Type: Report from Study
  Country: IT (occurrence: IT)
  Receive Date: 20230622
  Receipt Date: 20230622
  Transmission Date: 20230721
  Serious: Yes (Other)
  Sender: FDA-Public Use
  Company Number: None

PATIENT
  Age: 77 Year
  Sex: Male
  Weight: 76 kg

DRUGS (2)
  1. MEKTOVI [Suspect]
     Active Substance: BINIMETINIB
     Indication: Malignant melanoma
     Dosage: 45 MG, 2X/DAY, X 28 DAYS
     Route: 048
  2. ENCORAFENIB [Suspect]
     Active Substance: ENCORAFENIB
     Indication: Malignant melanoma
     Dosage: 450 MG, DAILY, X 28 DAYS
     Route: 048

REACTIONS (1)
  - Drug-induced liver injury [Recovered/Resolved]

NARRATIVE: CASE EVENT DATE: 20230221
